FAERS Safety Report 5078260-6 (Version None)
Quarter: 2006Q3

REPORT INFORMATION
  Report Type: 
  Country: None (occurrence: None)
  Receive Date: 20060811
  Receipt Date: 20060426
  Transmission Date: 20061208
  Serious: Yes (Death, Hospitalization)
  Sender: FDA-Public Use
  Company Number: FR-ROCHE-445893

PATIENT
  Age: 39 Year
  Sex: Female

DRUGS (9)
  1. RIVOTRIL [Suspect]
     Indication: DRUG USE FOR UNKNOWN INDICATION
     Route: 048
     Dates: start: 20051020, end: 20051118
  2. LAROXYL [Suspect]
     Indication: DRUG USE FOR UNKNOWN INDICATION
     Route: 048
     Dates: start: 20051105, end: 20051113
  3. LAROXYL [Suspect]
     Route: 048
     Dates: start: 20051114, end: 20051118
  4. THERALENE [Suspect]
     Indication: DRUG USE FOR UNKNOWN INDICATION
     Dosage: THERALENE (EX 6,549 R.P.) AT NIGHT
     Route: 048
     Dates: start: 20050928, end: 20051118
  5. TERCIAN [Suspect]
     Indication: DRUG USE FOR UNKNOWN INDICATION
     Route: 048
     Dates: start: 20051019, end: 20051104
  6. TERCIAN [Suspect]
     Route: 048
     Dates: end: 20051118
  7. LEPTICUR [Suspect]
     Indication: DRUG USE FOR UNKNOWN INDICATION
     Route: 048
     Dates: start: 20051101, end: 20051118
  8. LEPTICUR [Suspect]
     Route: 048
     Dates: start: 20051025
  9. DEPAMIDE [Suspect]
     Indication: DRUG USE FOR UNKNOWN INDICATION
     Route: 048
     Dates: start: 20051114, end: 20051118

REACTIONS (5)
  - DEPRESSED LEVEL OF CONSCIOUSNESS [None]
  - FLATULENCE [None]
  - MEGACOLON [None]
  - SHOCK [None]
  - SUICIDE ATTEMPT [None]
